FAERS Safety Report 9308606 (Version 1)
Quarter: 2013Q2

REPORT INFORMATION
  Report Type: Report from Study
  Country: US (occurrence: US)
  Receive Date: 20130524
  Receipt Date: 20130524
  Transmission Date: 20140414
  Serious: Yes (Other)
  Sender: FDA-Public Use
  Company Number: US-ABBOTT-13P-163-1090004-00

PATIENT
  Age: 43 Year
  Sex: Female

DRUGS (9)
  1. HUMIRA [Suspect]
     Indication: RHEUMATOID ARTHRITIS
     Dates: start: 200907
  2. KLONOPIN [Concomitant]
     Indication: ANXIETY
  3. GABAPENTIN [Concomitant]
     Indication: NEUROPATHY PERIPHERAL
  4. LAMICTAL [Concomitant]
     Indication: BIPOLAR DISORDER
  5. SEROQUEL [Concomitant]
     Indication: BIPOLAR DISORDER
     Dosage: AT NIGHT
  6. OMEPRAZOLE [Concomitant]
     Indication: GASTROOESOPHAGEAL REFLUX DISEASE
     Dosage: DAILY
  7. WELLBUTRIN [Concomitant]
     Indication: DEPRESSION
  8. LISINOPRIL/HCTZ [Concomitant]
     Indication: HYPERTENSION
     Dosage: 10/12.5 MG
  9. QVAR [Concomitant]
     Indication: DYSPNOEA
     Dosage: INHALER

REACTIONS (4)
  - Sinus disorder [Not Recovered/Not Resolved]
  - Fungal skin infection [Unknown]
  - Vaginitis bacterial [Unknown]
  - Pneumonia [Unknown]
